FAERS Safety Report 10351557 (Version 1)
Quarter: 2014Q3

REPORT INFORMATION
  Report Type: Spontaneous
  Country: FR (occurrence: FR)
  Receive Date: 20140730
  Receipt Date: 20140730
  Transmission Date: 20150326
  Serious: Yes (Hospitalization)
  Sender: FDA-Public Use
  Company Number: FR-TEVA-496993ISR

PATIENT
  Age: 62 Year
  Sex: Female

DRUGS (4)
  1. MODOPAR 62.5 (50MG/12.5MG) [Suspect]
     Active Substance: BENSERAZIDE HYDROCHLORIDE\LEVODOPA
     Indication: PARKINSON^S DISEASE
     Dosage: 3 DOSAGE FORMS DAILY; STARTED 3 YEARS AGO, ONGOING
     Route: 048
  2. DEROXAT [Suspect]
     Active Substance: PAROXETINE HYDROCHLORIDE
     Indication: DEPRESSION
     Dosage: STARTED 3 YEARS AGO, ONGOING
     Route: 048
  3. AZILECT [Suspect]
     Active Substance: RASAGILINE MESYLATE
     Indication: PARKINSON^S DISEASE
     Dosage: 1 DOSAGE FORMS DAILY; STARTED 3 YEARS AGO, ONGOING
     Route: 048
  4. TRIVASTAL 50MG LP [Suspect]
     Active Substance: PIRIBEDIL
     Indication: PARKINSON^S DISEASE
     Dosage: 5 DOSAGE FORMS DAILY; STARTED 3 YEARS AGO, ONGOING
     Route: 048

REACTIONS (4)
  - Pubis fracture [None]
  - Haemorrhoid operation [None]
  - Haematoma [None]
  - Pathological fracture [Recovered/Resolved with Sequelae]

NARRATIVE: CASE EVENT DATE: 201402
